FAERS Safety Report 15681770 (Version 1)
Quarter: 2018Q4

REPORT INFORMATION
  Report Type: Spontaneous
  Country: FR (occurrence: FR)
  Receive Date: 20181203
  Receipt Date: 20181203
  Transmission Date: 20190205
  Serious: Yes (Hospitalization)
  Sender: FDA-Public Use
  Company Number: PHHY2018FR169861

PATIENT
  Age: 26 Year
  Sex: Male

DRUGS (4)
  1. ALPRAZOLAM. [Suspect]
     Active Substance: ALPRAZOLAM
     Indication: SUICIDE ATTEMPT
     Dosage: 8 ?G/L, UNK
     Route: 048
     Dates: start: 20171222, end: 20171222
  2. STRESAM [Suspect]
     Active Substance: ETIFOXINE
     Indication: SUICIDE ATTEMPT
     Dosage: 8 ?G/L, UNK
     Route: 048
     Dates: start: 20171222, end: 20171222
  3. ZOLPIDEM [Suspect]
     Active Substance: ZOLPIDEM\ZOLPIDEM TARTRATE
     Indication: SUICIDE ATTEMPT
     Dosage: 8 ?G/L, UNK
     Route: 048
     Dates: start: 20171222, end: 20171222
  4. MIANSERINE [Suspect]
     Active Substance: MIANSERIN HYDROCHLORIDE
     Indication: SUICIDE ATTEMPT
     Dosage: 8 ?G/L, UNK
     Route: 048
     Dates: start: 20171222, end: 20171222

REACTIONS (2)
  - Toxicity to various agents [Recovered/Resolved]
  - Sedation [Recovered/Resolved]

NARRATIVE: CASE EVENT DATE: 20171222
